FAERS Safety Report 12037941 (Version 1)
Quarter: 2016Q1

REPORT INFORMATION
  Report Type: Spontaneous
  Country: US (occurrence: None)
  Receive Date: 20160205
  Receipt Date: 20160205
  Transmission Date: 20160526
  Serious: Yes (Disabling)
  Sender: FDA-Public Use
  Company Number: None

PATIENT
  Age: 47 Year
  Sex: Female
  Weight: 81.65 kg

DRUGS (10)
  1. ADDERALL [Concomitant]
     Active Substance: AMPHETAMINE ASPARTATE\AMPHETAMINE SULFATE\DEXTROAMPHETAMINE SACCHARATE\DEXTROAMPHETAMINE SULFATE
  2. PROTONIX [Concomitant]
     Active Substance: PANTOPRAZOLE SODIUM
  3. LOSARTAN. [Concomitant]
     Active Substance: LOSARTAN
  4. FISH OIL [Concomitant]
     Active Substance: FISH OIL
  5. VITAMIN D [Concomitant]
     Active Substance: CHOLECALCIFEROL
  6. PRALUENT [Suspect]
     Active Substance: ALIROCUMAB
     Indication: HYPERCHOLESTEROLAEMIA
     Dosage: 1 INJECTION SC, EVERY 2 WEEKS, GIVEN INTO/UNDER THE SKIN
     Dates: start: 20150921, end: 20160118
  7. AMLODIPINE [Concomitant]
     Active Substance: AMLODIPINE BESYLATE
  8. PRALUENT [Suspect]
     Active Substance: ALIROCUMAB
     Indication: DRUG THERAPY
     Dosage: 1 INJECTION SC, EVERY 2 WEEKS, GIVEN INTO/UNDER THE SKIN
     Dates: start: 20150921, end: 20160118
  9. SERTRALINE [Concomitant]
     Active Substance: SERTRALINE HYDROCHLORIDE
  10. MULTIVITAMIN [Concomitant]
     Active Substance: VITAMINS

REACTIONS (6)
  - Influenza like illness [None]
  - Pyrexia [None]
  - Constipation [None]
  - Ileus [None]
  - Nausea [None]
  - Vision blurred [None]

NARRATIVE: CASE EVENT DATE: 20150923
